FAERS Safety Report 11099294 (Version 1)
Quarter: 2015Q2

REPORT INFORMATION
  Report Type: Spontaneous
  Country: GB (occurrence: GB)
  Receive Date: 20150508
  Receipt Date: 20150508
  Transmission Date: 20150821
  Serious: Yes (Other)
  Sender: FDA-Public Use
  Company Number: GB-TEVA-560738ACC

PATIENT
  Age: 41 Year
  Sex: Female
  Weight: 79 kg

DRUGS (8)
  1. FUCIDIN [Concomitant]
     Active Substance: FUSIDIC ACID
     Dosage: 2 DOSAGE FORMS DAILY;
     Dates: start: 20150422
  2. ERYTHROMYCIN. [Concomitant]
     Active Substance: ERYTHROMYCIN
     Dosage: 4 DOSAGE FORMS DAILY;
     Dates: start: 20150424
  3. MEFENAMIC ACID. [Concomitant]
     Active Substance: MEFENAMIC ACID
     Dosage: 3 DOSAGE FORMS DAILY;
     Dates: start: 20150310, end: 20150317
  4. TRANEXAMIC ACID. [Concomitant]
     Active Substance: TRANEXAMIC ACID
     Dosage: 6 DOSAGE FORMS DAILY; 6 DOSAGE FORMS, AS NECESSARY
     Dates: start: 20150422
  5. NICOTINE. [Concomitant]
     Active Substance: NICOTINE
     Dosage: USE AS NEEDED
     Dates: start: 20150415
  6. AMLODIPINE [Concomitant]
     Active Substance: AMLODIPINE BESYLATE
     Dosage: 1 DOSAGE FORMS DAILY;
     Dates: start: 20150408
  7. CETIRIZINE [Concomitant]
     Active Substance: CETIRIZINE HYDROCHLORIDE
     Dosage: 1 DOSAGE FORMS DAILY;
     Dates: start: 20150424
  8. AMOXICILLIN. [Suspect]
     Active Substance: AMOXICILLIN
     Dates: start: 20150424

REACTIONS (2)
  - Peripheral swelling [Unknown]
  - Rash [Recovering/Resolving]

NARRATIVE: CASE EVENT DATE: 20150424
